FAERS Safety Report 5689421-7 (Version None)
Quarter: 2008Q1

REPORT INFORMATION
  Report Type: 
  Country: None (occurrence: None)
  Receive Date: 20080328
  Receipt Date: 20080314
  Transmission Date: 20080703
  Serious: Yes (Hospitalization, Other)
  Sender: FDA-Public Use
  Company Number: 2007SP016093

PATIENT
  Age: 62 Year
  Sex: Male

DRUGS (17)
  1. CORICIDIN COUGH + COLD [Suspect]
     Indication: POSTNASAL DRIP
     Dosage: ONCE; PO
     Route: 048
     Dates: start: 20070726, end: 20070727
  2. STUDY DRUG [Suspect]
     Indication: DRUG USE FOR UNKNOWN INDICATION
     Dosage: TID; PO
     Route: 048
     Dates: start: 20070217
  3. SILDENAFIL CITRATE [Suspect]
     Indication: DRUG USE FOR UNKNOWN INDICATION
  4. TOPROL-XL [Suspect]
     Indication: DRUG USE FOR UNKNOWN INDICATION
  5. VERAPAMIL [Suspect]
     Indication: DRUG USE FOR UNKNOWN INDICATION
  6. NORPACE [Concomitant]
  7. SINGULAIR [Concomitant]
  8. VITAMIN CAP [Concomitant]
  9. VITAMIN B-12 [Concomitant]
  10. BENZONATATE [Concomitant]
  11. PROTONIX [Concomitant]
  12. XOPONEX [Concomitant]
  13. TYLENOL (CAPLET) [Concomitant]
  14. AVELOX [Concomitant]
  15. FORADIL [Concomitant]
  16. HYDROCODONE BITARTRATE [Concomitant]
  17. ZYRTEC [Concomitant]

REACTIONS (9)
  - CORONARY ARTERY DISEASE [None]
  - DIZZINESS [None]
  - GASTROOESOPHAGEAL REFLUX DISEASE [None]
  - HYPERTROPHIC CARDIOMYOPATHY [None]
  - LYMPHADENOPATHY MEDIASTINAL [None]
  - PNEUMONIA [None]
  - POST PROCEDURAL INFECTION [None]
  - PULMONARY OEDEMA [None]
  - SLEEP APNOEA SYNDROME [None]
